FAERS Safety Report 8720793 (Version 3)
Quarter: 2012Q4

REPORT INFORMATION
  Report Type: 
  Country: US (occurrence: US)
  Receive Date: 20120813
  Receipt Date: 20121009
  Transmission Date: 20130627
  Serious: Yes (Other)
  Sender: FDA-Public Use
  Company Number: US-PFIZER INC-2012192421

PATIENT
  Age: 51 Year
  Sex: Female
  Weight: 70.75 kg

DRUGS (3)
  1. LYRICA [Suspect]
     Indication: NECK PAIN
     Dosage: 225mg in morning and 150mg in evening
     Route: 048
  2. LYRICA [Suspect]
     Indication: BACK PAIN
     Dosage: UNK
     Route: 048
  3. LYRICA [Suspect]
     Dosage: UNK

REACTIONS (7)
  - Muscle rupture [Recovered/Resolved]
  - Muscle strain [Recovered/Resolved]
  - Fibromyalgia [Unknown]
  - Headache [Unknown]
  - Nasopharyngitis [Unknown]
  - Sinusitis [Unknown]
  - Musculoskeletal pain [Unknown]
